FAERS Safety Report 23128440 (Version 5)
Quarter: 2024Q2

REPORT INFORMATION
  Report Type: Spontaneous
  Country: US (occurrence: US)
  Receive Date: 20231031
  Receipt Date: 20240401
  Transmission Date: 20240716
  Serious: Yes (Disabling, Other)
  Sender: FDA-Public Use
  Company Number: US-HORIZON THERAPEUTICS-HZN-2023-008278

PATIENT

DRUGS (13)
  1. TEPEZZA [Suspect]
     Active Substance: TEPROTUMUMAB-TRBW
     Indication: Endocrine ophthalmopathy
     Dosage: FIRST INFUSION
     Route: 042
     Dates: start: 20201014
  2. TEPEZZA [Suspect]
     Active Substance: TEPROTUMUMAB-TRBW
     Dosage: SECOND INFUSION
     Route: 042
     Dates: start: 20201104
  3. TEPEZZA [Suspect]
     Active Substance: TEPROTUMUMAB-TRBW
     Dosage: THIRD INFUSION
     Route: 042
     Dates: start: 20201125
  4. TEPEZZA [Suspect]
     Active Substance: TEPROTUMUMAB-TRBW
     Dosage: FOURTH INFUSION
     Route: 042
     Dates: start: 20210701
  5. TEPEZZA [Suspect]
     Active Substance: TEPROTUMUMAB-TRBW
     Dosage: FIFTH INFUSION
     Route: 042
     Dates: start: 20210722
  6. TEPEZZA [Suspect]
     Active Substance: TEPROTUMUMAB-TRBW
     Dosage: SIXTH INFUSION
     Route: 042
     Dates: start: 20210812
  7. TEPEZZA [Suspect]
     Active Substance: TEPROTUMUMAB-TRBW
     Dosage: SEVENTH INFUSION
     Route: 042
     Dates: start: 20210902
  8. TEPEZZA [Suspect]
     Active Substance: TEPROTUMUMAB-TRBW
     Dosage: EIGHTH INFUSION
     Route: 042
     Dates: start: 20210923
  9. NORVASC [Concomitant]
     Active Substance: AMLODIPINE BESYLATE
     Dosage: UNK UNK, QD
     Route: 048
     Dates: start: 20170128
  10. VITAMIN D3 [Concomitant]
     Active Substance: CHOLECALCIFEROL
  11. TYLENOL [Concomitant]
     Active Substance: ACETAMINOPHEN
     Dosage: EVERY SIX HOURS
     Dates: start: 20190512
  12. ATROPINE [Concomitant]
     Active Substance: ATROPINE\ATROPINE SULFATE
     Dosage: PLACE 1 DROP UNDER THE TONGUE EVERY 4 HOURS
     Dates: start: 20190514
  13. ONABOTULINUMTOXINA [Concomitant]
     Active Substance: ONABOTULINUMTOXINA

REACTIONS (24)
  - Disability [Unknown]
  - Physical disability [Unknown]
  - Deafness [Unknown]
  - Mental disorder [Unknown]
  - Injury [Unknown]
  - Pain [Unknown]
  - Condition aggravated [Unknown]
  - Dyspnoea [Unknown]
  - Emotional distress [Unknown]
  - Discomfort [Unknown]
  - Anxiety [Unknown]
  - Impaired quality of life [Unknown]
  - Economic problem [Unknown]
  - Product quality issue [Unknown]
  - Food intolerance [Unknown]
  - Abdominal discomfort [Unknown]
  - Weight decreased [Unknown]
  - Ear discomfort [Not Recovered/Not Resolved]
  - Tinnitus [Unknown]
  - Balance disorder [Unknown]
  - Nystagmus [Unknown]
  - Strabismus [Unknown]
  - Eye pain [Unknown]
  - Conjunctival hyperaemia [Unknown]

NARRATIVE: CASE EVENT DATE: 20200101
